FAERS Safety Report 7056429-9 (Version None)
Quarter: 2010Q4

REPORT INFORMATION
  Report Type: 
  Country: None (occurrence: None)
  Receive Date: 20101021
  Receipt Date: 20101016
  Transmission Date: 20110411
  Serious: Yes (Death)
  Sender: FDA-Public Use
  Company Number: IN-PFIZER INC-2010132249

PATIENT
  Age: 52 Year
  Sex: Female
  Weight: 48 kg

DRUGS (2)
  1. MAGNEX [Suspect]
     Indication: SEPSIS
     Dosage: 1.5 G, 3X/DAY
     Route: 042
  2. AMIKACIN [Concomitant]
     Indication: SEPSIS
     Dosage: 1 G, 1X/DAY
     Route: 042

REACTIONS (1)
  - DEATH [None]
